FAERS Safety Report 16798199 (Version 1)
Quarter: 2019Q4

REPORT INFORMATION
  Report Type: Spontaneous
  Country: US (occurrence: US)
  Receive Date: 20190911
  Receipt Date: 20190911
  Transmission Date: 20200122
  Serious: No
  Sender: FDA-Public Use
  Company Number: None

PATIENT
  Age: 56 Year
  Sex: Female
  Weight: 85.5 kg

DRUGS (8)
  1. OMEPRAZOLE. [Concomitant]
     Active Substance: OMEPRAZOLE
  2. PEPPERMINT OIL [Concomitant]
     Active Substance: PEPPERMINT OIL
  3. JARDIANCE [Suspect]
     Active Substance: EMPAGLIFLOZIN
     Indication: DIABETES MELLITUS
     Dates: start: 20170801, end: 20180801
  4. GAS-X [Concomitant]
     Active Substance: DIMETHICONE
  5. FISH OIL [Concomitant]
     Active Substance: FISH OIL
  6. METFORMIN [Concomitant]
     Active Substance: METFORMIN HYDROCHLORIDE
  7. IBUPROFEN. [Concomitant]
     Active Substance: IBUPROFEN
  8. SAMBUCUS ELDERBERRY [Concomitant]

REACTIONS (5)
  - Hepatic enzyme increased [None]
  - Constipation [None]
  - Genital blister [None]
  - Fungal infection [None]
  - Gastrointestinal pain [None]

NARRATIVE: CASE EVENT DATE: 20180531
